FAERS Safety Report 11515550 (Version 1)
Quarter: 2015Q3

REPORT INFORMATION
  Report Type: Spontaneous
  Country: US (occurrence: US)
  Receive Date: 20150916
  Receipt Date: 20150916
  Transmission Date: 20151125
  Serious: No
  Sender: FDA-Public Use
  Company Number: US-ASTRAZENECA-2015SE87693

PATIENT
  Age: 3080 Week
  Sex: Female
  Weight: 70.3 kg

DRUGS (4)
  1. PULMICORT FLEXHALER [Suspect]
     Active Substance: BUDESONIDE
     Indication: DRUG HYPERSENSITIVITY
     Dosage: 180 MCG ONE PUFF ONCE A DAY
     Route: 055
     Dates: start: 2013, end: 20150904
  2. PROAIR HFA RESCUE INHALER [Concomitant]
     Indication: DRUG HYPERSENSITIVITY
     Route: 055
     Dates: start: 2013
  3. PULMICORT FLEXHALER [Suspect]
     Active Substance: BUDESONIDE
     Indication: DRUG HYPERSENSITIVITY
     Dosage: 180 MCG ONE PUFF ONCE A DAY
     Route: 055
     Dates: start: 20150904
  4. FLONASE [Concomitant]
     Active Substance: FLUTICASONE PROPIONATE
     Indication: DRUG HYPERSENSITIVITY
     Dates: start: 2013

REACTIONS (3)
  - Cough [Recovering/Resolving]
  - Expired product administered [Unknown]
  - Product quality issue [Unknown]

NARRATIVE: CASE EVENT DATE: 20150831
